FAERS Safety Report 6334847-1 (Version None)
Quarter: 2009Q3

REPORT INFORMATION
  Report Type: 
  Country: None (occurrence: None)
  Receive Date: 20090831
  Receipt Date: 20090810
  Transmission Date: 20100115
  Serious: Yes (Other)
  Sender: FDA-Public Use
  Company Number: PHHY2009IT33965

PATIENT
  Sex: Female

DRUGS (2)
  1. ZOMETA [Suspect]
     Indication: MULTIPLE MYELOMA
     Dosage: 4 MG, QMO
     Route: 042
     Dates: start: 20080201, end: 20090131
  2. THALIDOMIDE [Concomitant]
     Dosage: UNK
     Route: 048
     Dates: start: 20080301, end: 20090531

REACTIONS (1)
  - OSTEOMYELITIS [None]
